FAERS Safety Report 10558971 (Version 2)
Quarter: 2015Q1

REPORT INFORMATION
  Report Type: Spontaneous
  Country: CA (occurrence: CA)
  Receive Date: 20141102
  Receipt Date: 20150114
  Transmission Date: 20150720
  Serious: Yes (Other)
  Sender: FDA-Public Use
  Company Number: CA-ROCHE-1483707

PATIENT
  Sex: Male

DRUGS (3)
  1. LUCENTIS [Suspect]
     Active Substance: RANIBIZUMAB
     Route: 050
     Dates: start: 201212
  2. LUCENTIS [Suspect]
     Active Substance: RANIBIZUMAB
     Dosage: DRUG RESTARTED
     Route: 050
     Dates: start: 201211
  3. LUCENTIS [Suspect]
     Active Substance: RANIBIZUMAB
     Indication: PRODUCT USED FOR UNKNOWN INDICATION
     Dosage: START DATE, DOSE: NOT REPORTED
     Route: 050

REACTIONS (3)
  - Cerebrovascular accident [Unknown]
  - Embolism [Unknown]
  - Myocardial infarction [Unknown]
